FAERS Safety Report 25593662 (Version 1)
Quarter: 2025Q3

REPORT INFORMATION
  Report Type: Spontaneous
  Country: US (occurrence: US)
  Receive Date: 20250722
  Receipt Date: 20250722
  Transmission Date: 20251020
  Serious: Yes (Other)
  Sender: ALEXION PHARMACEUTICALS
  Company Number: US-ASTRAZENECA-202507GLO012447US

PATIENT
  Age: 54 Year
  Sex: Female

DRUGS (13)
  1. NEXIUM [Suspect]
     Active Substance: ESOMEPRAZOLE MAGNESIUM
     Route: 065
  2. FAMOTIDINE [Concomitant]
     Active Substance: FAMOTIDINE
  3. NALOXONE [Concomitant]
     Active Substance: NALOXONE
  4. PROTONIX [Concomitant]
     Active Substance: PANTOPRAZOLE SODIUM
  5. XANAX [Concomitant]
     Active Substance: ALPRAZOLAM
  6. CELEXA [Concomitant]
     Active Substance: CITALOPRAM HYDROBROMIDE
  7. ESTRACE [Concomitant]
     Active Substance: ESTRADIOL
  8. LAMICTAL [Concomitant]
     Active Substance: LAMOTRIGINE
  9. SYNTHROID [Concomitant]
     Active Substance: LEVOTHYROXINE SODIUM
  10. ZESTRIL [Concomitant]
     Active Substance: LISINOPRIL
  11. TOPROL XL [Concomitant]
     Active Substance: METOPROLOL SUCCINATE
  12. ZOFRAN [Concomitant]
     Active Substance: ONDANSETRON HYDROCHLORIDE
  13. ROXICODONE [Concomitant]
     Active Substance: OXYCODONE HYDROCHLORIDE

REACTIONS (2)
  - Gastric cancer [Unknown]
  - Gastric neuroendocrine carcinoma [Unknown]

NARRATIVE: CASE EVENT DATE: 20230504
